FAERS Safety Report 14012388 (Version 2)
Quarter: 2017Q3

REPORT INFORMATION
  Report Type: Spontaneous
  Country: IT (occurrence: IT)
  Receive Date: 20170926
  Receipt Date: 20170926
  Transmission Date: 20171128
  Serious: Yes (Other)
  Sender: FDA-Public Use
  Company Number: PHHY2017IT140143

PATIENT
  Sex: Female

DRUGS (3)
  1. METHYLPREDNISOLONE. [Suspect]
     Active Substance: METHYLPREDNISOLONE
     Indication: MONOPARESIS
     Route: 042
  2. METHYLPREDNISOLONE. [Suspect]
     Active Substance: METHYLPREDNISOLONE
     Indication: DYSARTHRIA
  3. GILENYA [Suspect]
     Active Substance: FINGOLIMOD HYDROCHLORIDE
     Indication: MULTIPLE SCLEROSIS
     Dosage: UNK
     Route: 065
     Dates: start: 201106, end: 201409

REACTIONS (6)
  - Rebound effect [Unknown]
  - Monoparesis [Not Recovered/Not Resolved]
  - Quadriplegia [Recovering/Resolving]
  - Aphasia [Recovering/Resolving]
  - Maternal exposure during pregnancy [Unknown]
  - Dysarthria [Not Recovered/Not Resolved]
